FAERS Safety Report 21118767 (Version 2)
Quarter: 2022Q3

REPORT INFORMATION
  Report Type: Spontaneous
  Country: CA (occurrence: CA)
  Receive Date: 20220722
  Receipt Date: 20220802
  Transmission Date: 20221026
  Serious: Yes (Other)
  Sender: FDA-Public Use
  Company Number: CA-BAYER-2022A098827

PATIENT
  Sex: Female

DRUGS (2)
  1. EYLEA [Suspect]
     Active Substance: AFLIBERCEPT
     Indication: Dry age-related macular degeneration
     Dosage: 2 MG, UNK (OU - LAST INJECTION), SOLUTION FOR INJECTION
     Route: 031
     Dates: start: 20220705, end: 20220705
  2. EYLEA [Suspect]
     Active Substance: AFLIBERCEPT
     Dosage: 2 MG, UNK (OU - TOTAL OF 23 INJECTIONS), SOLUTION FOR INJECTION
     Route: 031
     Dates: start: 20220705

REACTIONS (9)
  - Bacterial endophthalmitis [Recovering/Resolving]
  - Blindness [Unknown]
  - Conjunctival hyperaemia [Recovering/Resolving]
  - Corneal opacity [Recovering/Resolving]
  - Hypopyon [Recovering/Resolving]
  - Vitreous opacities [Recovering/Resolving]
  - Eye pain [Recovering/Resolving]
  - Swelling of eyelid [Recovering/Resolving]
  - Multiple use of single-use product [Unknown]

NARRATIVE: CASE EVENT DATE: 20220706
